FAERS Safety Report 9820994 (Version 1)
Quarter: 2013Q4

REPORT INFORMATION
  Report Type: Spontaneous
  Country: US (occurrence: None)
  Receive Date: 20131028
  Receipt Date: 20131028
  Transmission Date: 20140711
  Serious: No
  Sender: FDA-Public Use
  Company Number: 2013US001633

PATIENT
  Age: 71 Year
  Sex: Male
  Weight: 93 kg

DRUGS (8)
  1. ICLUSIG [Suspect]
     Indication: CHRONIC MYELOID LEUKAEMIA
     Route: 048
     Dates: start: 20130330
  2. LISINOPRIL (LISINOPRIL) [Concomitant]
  3. ALLOPURINOL (ALLOPURINOL) [Concomitant]
  4. DIGOXIN (DIGOXIN) [Concomitant]
  5. LASIX (FUROSEMIDE) [Concomitant]
  6. COUMADIN (WARFARIN SODIUM) [Concomitant]
  7. GABAPENTIN (GABAPENTIN) [Concomitant]
  8. VITAMIN B12 (COBAMAMIDE) [Concomitant]

REACTIONS (3)
  - Breast pain [None]
  - Breast swelling [None]
  - Breast induration [None]
